FAERS Safety Report 23405135 (Version 2)
Quarter: 2024Q2

REPORT INFORMATION
  Report Type: Spontaneous
  Country: US (occurrence: US)
  Receive Date: 20240116
  Receipt Date: 20240401
  Transmission Date: 20240716
  Serious: No
  Sender: FDA-Public Use
  Company Number: US-Eisai-EC-2024-156247

PATIENT
  Age: 67 Year
  Sex: Female

DRUGS (1)
  1. LEQEMBI [Suspect]
     Active Substance: LECANEMAB-IRMB
     Indication: Dementia Alzheimer^s type
     Dosage: DOSE UNKNOWN
     Route: 042
     Dates: start: 20231206

REACTIONS (12)
  - Abnormal dreams [Unknown]
  - Tachyphrenia [Unknown]
  - Nausea [Unknown]
  - Alopecia [Unknown]
  - Rash [Unknown]
  - Influenza like illness [Unknown]
  - Illness [Unknown]
  - Headache [Unknown]
  - Gait disturbance [Unknown]
  - Asthenia [Unknown]
  - Eye swelling [Unknown]
  - Swelling face [Unknown]

NARRATIVE: CASE EVENT DATE: 20231201
